FAERS Safety Report 18081632 (Version 7)
Quarter: 2021Q4

REPORT INFORMATION
  Report Type: Spontaneous
  Country: JP (occurrence: JP)
  Receive Date: 20200728
  Receipt Date: 20211011
  Transmission Date: 20220303
  Serious: Yes (Hospitalization)
  Sender: FDA-Public Use
  Company Number: JP-JNJJAKJPN-202044988

PATIENT
  Age: 88 Year
  Sex: Female
  Weight: 36.7 kg

DRUGS (8)
  1. DARZALEX [Suspect]
     Active Substance: DARATUMUMAB
     Indication: Plasma cell myeloma
     Dosage: 28 COURSES
     Route: 041
     Dates: start: 20180607, end: 20200708
  2. VELCADE [Suspect]
     Active Substance: BORTEZOMIB
     Indication: Plasma cell myeloma
     Dosage: DOSE UNKNOWN, 28 COURSES
     Route: 065
     Dates: start: 20180607
  3. DEXAMETHASONE [Concomitant]
     Active Substance: DEXAMETHASONE
     Indication: Plasma cell myeloma
     Dosage: DOSE UNKNOWN, 28 COURSES
     Route: 065
     Dates: start: 20180607
  4. SULFAMETHOXAZOLE\TRIMETHOPRIM [Concomitant]
     Active Substance: SULFAMETHOXAZOLE\TRIMETHOPRIM
     Dosage: DOSE UNKNOWN
     Route: 048
     Dates: end: 201912
  5. NEXIUM [Concomitant]
     Active Substance: ESOMEPRAZOLE MAGNESIUM
     Route: 048
  6. NICORANDIL [Concomitant]
     Active Substance: NICORANDIL
     Route: 065
  7. ASPIRIN [Concomitant]
     Active Substance: ASPIRIN
     Route: 048
  8. ACYCLOVIR [Concomitant]
     Active Substance: ACYCLOVIR
     Route: 065

REACTIONS (2)
  - Sepsis [Recovered/Resolved]
  - Meningitis listeria [Recovered/Resolved]

NARRATIVE: CASE EVENT DATE: 20200712
